FAERS Safety Report 10629024 (Version 1)
Quarter: 2014Q4

REPORT INFORMATION
  Report Type: Spontaneous
  Country: US (occurrence: US)
  Receive Date: 20141205
  Receipt Date: 20141205
  Transmission Date: 20150529
  Serious: No
  Sender: FDA-Public Use
  Company Number: US-BRISTOL-MYERS SQUIBB COMPANY-21590708

PATIENT
  Age: 76 Year
  Sex: Male

DRUGS (1)
  1. KENALOG-10 [Suspect]
     Active Substance: TRIAMCINOLONE ACETONIDE
     Indication: EPICONDYLITIS
     Dosage: SECOND INJECTION ON NOVEMBER 5TH 2014
     Dates: start: 201405

REACTIONS (1)
  - Blood glucose increased [Unknown]
